FAERS Safety Report 8116895 (Version 2)
Quarter: 2012Q4

REPORT INFORMATION
  Report Type: 
  Country: IT (occurrence: IT)
  Receive Date: 20110901
  Receipt Date: 20121010
  Transmission Date: 20130627
  Serious: Yes (Life-Threatening, Hospitalization)
  Sender: FDA-Public Use
  Company Number: IT-ELI_LILLY_AND_COMPANY-IT201108007951

PATIENT
  Age: 55 Year
  Sex: Male

DRUGS (4)
  1. ALIMTA [Suspect]
     Indication: LUNG ADENOCARCINOMA
     Dosage: 945 mg, unknown
     Route: 042
  2. ALIMTA [Suspect]
     Dosage: 970 mg, unknown
     Route: 042
     Dates: start: 20110216, end: 20110309
  3. CISPLATIN [Concomitant]
     Dosage: 141.75 mg, unknown
     Route: 042
  4. CISPLATIN [Concomitant]
     Dosage: 155.2 mg, unknown
     Route: 042

REACTIONS (4)
  - Subarachnoid haemorrhage [Recovered/Resolved]
  - Weight decreased [Recovering/Resolving]
  - Nausea [Recovering/Resolving]
  - Vomiting [Recovering/Resolving]
